FAERS Safety Report 7481937-6 (Version None)
Quarter: 2011Q2

REPORT INFORMATION
  Report Type: 
  Country: None (occurrence: None)
  Receive Date: 20110509
  Receipt Date: 20110502
  Transmission Date: 20111010
  Serious: Yes (Hospitalization, Other)
  Sender: FDA-Public Use
  Company Number: S06-USA-01121-01

PATIENT
  Age: 65 Year
  Sex: Female

DRUGS (2)
  1. LEXAPRO [Suspect]
     Indication: GENERALISED ANXIETY DISORDER
     Dosage: 10 MG (10 MG,1 IN 1 D), ORAL
     Route: 048
     Dates: start: 20060308, end: 20090101
  2. VALIUM [Concomitant]

REACTIONS (16)
  - INSOMNIA [None]
  - FEELING ABNORMAL [None]
  - HYPOMETABOLISM [None]
  - RESTLESSNESS [None]
  - DRY EYE [None]
  - LUNG CARCINOMA CELL TYPE UNSPECIFIED STAGE IV [None]
  - LETHARGY [None]
  - TINNITUS [None]
  - CHRONIC SINUSITIS [None]
  - ASTHMA [None]
  - PNEUMONIA [None]
  - TENSION HEADACHE [None]
  - FATIGUE [None]
  - MALAISE [None]
  - SOMNOLENCE [None]
  - DRUG INTOLERANCE [None]
